FAERS Safety Report 9670310 (Version 1)
Quarter: 2013Q4

REPORT INFORMATION
  Report Type: Spontaneous
  Country: US (occurrence: None)
  Receive Date: 20131029
  Receipt Date: 20131029
  Transmission Date: 20140711
  Serious: Yes (Death)
  Sender: FDA-Public Use
  Company Number: 2013038569

PATIENT
  Age: 42 Year
  Sex: 0

DRUGS (1)
  1. IMMUNE GLOBULIN [Suspect]
     Indication: ENCEPHALITIS AUTOIMMUNE
     Dosage: [1] TWO SERIES {1} INTRAVENOUS (HUMAN) 10 % LIQUID INTRAVENOUS (NOT OTHERWISE SPECIFIED)?

REACTIONS (5)
  - Drug ineffective for unapproved indication [None]
  - General physical health deterioration [None]
  - Aspiration [None]
  - Cardio-respiratory arrest [None]
  - Dysphagia [None]
